FAERS Safety Report 8547600-5 (Version None)
Quarter: 2012Q3

REPORT INFORMATION
  Report Type: 
  Country: None (occurrence: None)
  Receive Date: 20120727
  Receipt Date: 20120312
  Transmission Date: 20120928
  Serious: Yes (Hospitalization)
  Sender: FDA-Public Use
  Company Number: US-ASTRAZENECA-2012SE16838

PATIENT
  Age: 32 Year
  Sex: Female
  Weight: 127 kg

DRUGS (4)
  1. SEROQUEL [Suspect]
     Route: 048
     Dates: start: 20100101, end: 20120301
  2. ATIVAN [Concomitant]
  3. SEROQUEL [Suspect]
     Indication: SCHIZOAFFECTIVE DISORDER
     Route: 048
     Dates: start: 20040101, end: 20100101
  4. DEPAKOTE [Concomitant]

REACTIONS (2)
  - WEIGHT INCREASED [None]
  - PANCREATITIS [None]
